FAERS Safety Report 23554582 (Version 1)
Quarter: 2024Q1

REPORT INFORMATION
  Report Type: Spontaneous
  Country: US (occurrence: None)
  Receive Date: 20240222
  Receipt Date: 20240222
  Transmission Date: 20240410
  Serious: Yes (Hospitalization)
  Sender: FDA-Public Use
  Company Number: None

PATIENT
  Sex: Female

DRUGS (5)
  1. OPSUMIT [Suspect]
     Active Substance: MACITENTAN
     Indication: Pulmonary arterial hypertension
     Dosage: FREQUENCY : DAILY;?
     Route: 048
     Dates: start: 202312
  2. DEVICE [Concomitant]
     Active Substance: DEVICE
  3. STERILE DILUENT FOR REMODULIN [Concomitant]
     Active Substance: WATER
  4. OFEV [Concomitant]
     Active Substance: NINTEDANIB
  5. REMODULIN [Concomitant]
     Active Substance: TREPROSTINIL

REACTIONS (2)
  - Hypoxia [None]
  - Condition aggravated [None]
